FAERS Safety Report 5317271-X (Version None)
Quarter: 2007Q2

REPORT INFORMATION
  Report Type: 
  Country: None (occurrence: None)
  Receive Date: 20070504
  Receipt Date: 20070424
  Transmission Date: 20071010
  Serious: Yes (Other)
  Sender: FDA-Public Use
  Company Number: DE-ABBOTT-07P-062-0365956-00

PATIENT
  Age: 32 Year
  Sex: Female
  Weight: 60 kg

DRUGS (3)
  1. HYDROMORPHONE HCL [Suspect]
     Indication: ANALGESIC THERAPY
     Dosage: 32 MG BID, UP TO 2.6 MG QID
  2. ADRENOCORTICOTROPIC HORMONE [Concomitant]
     Indication: DRUG USE FOR UNKNOWN INDICATION
  3. INSULIN [Concomitant]
     Indication: INSULIN TOLERANCE TEST
     Dosage: 0.5 IU/KG BODY WEIGHT

REACTIONS (2)
  - ADRENAL DISORDER [None]
  - AMENORRHOEA [None]
